FAERS Safety Report 25876725 (Version 1)
Quarter: 2025Q4

REPORT INFORMATION
  Report Type: Spontaneous
  Country: EU (occurrence: EU)
  Receive Date: 20251003
  Receipt Date: 20251003
  Transmission Date: 20260118
  Serious: Yes (Other)
  Sender: LEO PHARM
  Company Number: None

PATIENT
  Age: 30 Year
  Sex: Female
  Weight: 60 kg

DRUGS (1)
  1. PROTOPIC [Suspect]
     Active Substance: TACROLIMUS
     Indication: Dermatitis atopic
     Dosage: UNK
     Route: 003

REACTIONS (8)
  - Erythema [Recovering/Resolving]
  - Loss of personal independence in daily activities [Recovering/Resolving]
  - Topical steroid withdrawal reaction [Recovering/Resolving]
  - Pruritus [Recovering/Resolving]
  - Lymphorrhoea [Recovering/Resolving]
  - Skin swelling [Recovering/Resolving]
  - Malaise [Recovering/Resolving]
  - Sensitive skin [Recovering/Resolving]

NARRATIVE: CASE EVENT DATE: 20191001
